FAERS Safety Report 12545377 (Version 2)
Quarter: 2016Q4

REPORT INFORMATION
  Report Type: Spontaneous
  Country: US (occurrence: US)
  Receive Date: 20160711
  Receipt Date: 20161003
  Transmission Date: 20170207
  Serious: No
  Sender: FDA-Public Use
  Company Number: US-ACTELION-A-US2016-138801

PATIENT
  Age: 76 Year
  Sex: Female

DRUGS (4)
  1. PAROXETINE. [Concomitant]
     Active Substance: PAROXETINE
  2. CLONAZEPAM. [Concomitant]
     Active Substance: CLONAZEPAM
  3. VALCHLOR [Suspect]
     Active Substance: MECHLORETHAMINE
     Indication: MYCOSIS FUNGOIDES
     Dosage: UNK, QOD
     Route: 061
     Dates: start: 201606
  4. IBUPROFEN. [Concomitant]
     Active Substance: IBUPROFEN

REACTIONS (4)
  - Application site pruritus [Unknown]
  - Therapy non-responder [Not Recovered/Not Resolved]
  - Application site erythema [Unknown]
  - Disease progression [Unknown]
